FAERS Safety Report 24257091 (Version 1)
Quarter: 2024Q3

REPORT INFORMATION
  Report Type: Spontaneous
  Country: US (occurrence: US)
  Receive Date: 20240828
  Receipt Date: 20240828
  Transmission Date: 20241016
  Serious: Yes (Other)
  Sender: AMGEN
  Company Number: US-AMGEN-USASP2024167804

PATIENT

DRUGS (1)
  1. PREDNISONE [Suspect]
     Active Substance: PREDNISONE
     Indication: Uveitis
     Dosage: UNK, (} 10 MG/D,{ 10 MG/D)
     Route: 048

REACTIONS (4)
  - Cataract [Unknown]
  - Uveitis [Unknown]
  - Macular oedema [Unknown]
  - Glaucoma [Unknown]
